FAERS Safety Report 18083788 (Version 4)
Quarter: 2020Q3

REPORT INFORMATION
  Report Type: Spontaneous
  Country: US (occurrence: US)
  Receive Date: 20200729
  Receipt Date: 20200814
  Transmission Date: 20201103
  Serious: No
  Sender: FDA-Public Use
  Company Number: US-AMGEN-USASP2020116620

PATIENT
  Age: 58 Year
  Sex: Male
  Weight: 95.24 kg

DRUGS (3)
  1. BENDAMUSTINE [Concomitant]
     Active Substance: BENDAMUSTINE
     Indication: LYMPHOMA
     Dosage: UNK UNK, QWK (FOR 4 WEEK AND THEN ONCE MONTHLY)
     Dates: start: 20200326
  2. NEULASTA [Suspect]
     Active Substance: PEGFILGRASTIM
     Indication: PROPHYLAXIS
     Dosage: UNK UNK, AFTER CHEMO
     Route: 065
     Dates: start: 20200326
  3. OBINUTUZUMAB. [Concomitant]
     Active Substance: OBINUTUZUMAB
     Indication: LYMPHOMA
     Dosage: UNK UNK, QWK (FOR 4 WEEK AND THEN ONCE MONTHLY)
     Dates: start: 20200326

REACTIONS (6)
  - Dyspnoea [Recovered/Resolved]
  - Device use error [Unknown]
  - Accidental exposure to product [Unknown]
  - Feeling abnormal [Unknown]
  - Pain [Recovered/Resolved]
  - Asthenia [Recovered/Resolved]

NARRATIVE: CASE EVENT DATE: 2020
